FAERS Safety Report 18222576 (Version 3)
Quarter: 2020Q4

REPORT INFORMATION
  Report Type: Report from Study
  Country: CA (occurrence: CA)
  Receive Date: 20200902
  Receipt Date: 20201102
  Transmission Date: 20210113
  Serious: Yes (Other)
  Sender: FDA-Public Use
  Company Number: CA-JNJFOC-20200837961

PATIENT
  Age: 6 Decade
  Sex: Female
  Weight: 149.6 kg

DRUGS (3)
  1. STELARA [Suspect]
     Active Substance: USTEKINUMAB
  2. STELARA [Suspect]
     Active Substance: USTEKINUMAB
     Indication: CROHN^S DISEASE
     Dosage: PATIENT RECEIVED 8TH DOSE OF 90MG ON 20/OCT/2020
     Route: 058
     Dates: start: 20190917
  3. PREDNISONE. [Suspect]
     Active Substance: PREDNISONE
     Indication: GASTRITIS
     Route: 065

REACTIONS (4)
  - Crohn^s disease [Unknown]
  - Gastritis [Not Recovered/Not Resolved]
  - Cerebrovascular accident [Unknown]
  - Eye inflammation [Not Recovered/Not Resolved]
